FAERS Safety Report 8312867-5 (Version None)
Quarter: 2012Q2

REPORT INFORMATION
  Report Type: 
  Country: None (occurrence: None)
  Receive Date: 20120426
  Receipt Date: 20120419
  Transmission Date: 20120825
  Serious: No
  Sender: FDA-Public Use
  Company Number: US-PFIZER INC-2012099955

PATIENT

DRUGS (1)
  1. DILANTIN-125 [Suspect]
     Dosage: 100 MG, UNK

REACTIONS (1)
  - DYSPHAGIA [None]
